FAERS Safety Report 24023843 (Version 1)
Quarter: 2024Q2

REPORT INFORMATION
  Report Type: Report from Study
  Country: CN (occurrence: CN)
  Receive Date: 20240627
  Receipt Date: 20240627
  Transmission Date: 20240716
  Serious: No
  Sender: FDA-Public Use
  Company Number: CN-ROCHE-3241333

PATIENT
  Age: 71 Year
  Sex: Female

DRUGS (2)
  1. ALECENSA [Suspect]
     Active Substance: ALECTINIB HYDROCHLORIDE
     Indication: Non-small cell lung cancer metastatic
     Dosage: 224CAPSULES PER BOX
     Route: 048
  2. ALECENSA [Suspect]
     Active Substance: ALECTINIB HYDROCHLORIDE
     Route: 048

REACTIONS (7)
  - Drug resistance [Unknown]
  - Nasopharyngitis [Unknown]
  - Tumour marker increased [Unknown]
  - Asthenia [Unknown]
  - Insomnia [Unknown]
  - Dry mouth [Recovering/Resolving]
  - Constipation [Recovering/Resolving]
